FAERS Safety Report 9398982 (Version 1)
Quarter: 2013Q3

REPORT INFORMATION
  Report Type: Report from Study
  Country: AU (occurrence: AU)
  Receive Date: 20130714
  Receipt Date: 20130714
  Transmission Date: 20140515
  Serious: Yes (Other)
  Sender: FDA-Public Use
  Company Number: PHHY2013AU072987

PATIENT
  Sex: Female

DRUGS (7)
  1. SANDOSTATIN LAR [Suspect]
     Indication: CARCINOID SYNDROME
     Dosage: 30 MG, UNK
     Route: 030
     Dates: start: 201205
  2. ASPIRIN [Concomitant]
     Dosage: UNK UKN, UNK
  3. FERRO F [Concomitant]
     Dosage: UNK UKN, UNK
  4. DIGOXIN [Concomitant]
     Dosage: UNK UKN, UNK
  5. OMEPRAZOLE [Concomitant]
     Dosage: UNK UKN, UNK
  6. SIMVASTATIN [Concomitant]
     Dosage: UNK UKN, UNK
  7. CREON [Concomitant]
     Dosage: UNK UKN, UNK

REACTIONS (1)
  - Urinary tract infection [Recovering/Resolving]
